FAERS Safety Report 10028813 (Version 2)
Quarter: 2014Q2

REPORT INFORMATION
  Report Type: Report from Study
  Country: US (occurrence: US)
  Receive Date: 20140321
  Receipt Date: 20140404
  Transmission Date: 20141212
  Serious: Yes (Hospitalization)
  Sender: FDA-Public Use
  Company Number: US-ACTELION-A-US2013-96490

PATIENT
  Age: 4 Year
  Sex: Female

DRUGS (3)
  1. TRACLEER [Suspect]
     Indication: PULMONARY ARTERIAL HYPERTENSION
     Dosage: 31.25 MG, BID
     Route: 048
     Dates: start: 20120928, end: 20140115
  2. TRACLEER [Suspect]
     Dosage: 15.625 MG, BID
     Route: 048
     Dates: start: 20120824, end: 20120927
  3. SILDENAFIL [Concomitant]

REACTIONS (1)
  - Cardiac operation [Recovering/Resolving]
